FAERS Safety Report 17638154 (Version 1)
Quarter: 2020Q2

REPORT INFORMATION
  Report Type: Spontaneous
  Country: BR (occurrence: BR)
  Receive Date: 20200407
  Receipt Date: 20200407
  Transmission Date: 20200713
  Serious: Yes (Other)
  Sender: FDA-Public Use
  Company Number: NVSC2020BR092489

PATIENT
  Age: 63 Year
  Sex: Female

DRUGS (2)
  1. ACLASTA [Suspect]
     Active Substance: ZOLEDRONIC ACID
     Indication: HYPOCALCAEMIA
  2. ACLASTA [Suspect]
     Active Substance: ZOLEDRONIC ACID
     Indication: OSTEOPENIA
     Dosage: 1 DF (5 MG/100 ML) (JUL 2019 OR AUG 2019)
     Route: 065

REACTIONS (4)
  - Musculoskeletal pain [Not Recovered/Not Resolved]
  - Nodule [Unknown]
  - Lymphoma [Not Recovered/Not Resolved]
  - Benign bone neoplasm [Not Recovered/Not Resolved]

NARRATIVE: CASE EVENT DATE: 201911
